FAERS Safety Report 17140958 (Version 1)
Quarter: 2019Q4

REPORT INFORMATION
  Report Type: Spontaneous
  Country: US (occurrence: US)
  Receive Date: 20191211
  Receipt Date: 20191211
  Transmission Date: 20200122
  Serious: No
  Sender: FDA-Public Use
  Company Number: US-PFIZER INC-2016466898

PATIENT
  Age: 88 Year
  Sex: Female
  Weight: 76.64 kg

DRUGS (4)
  1. TIKOSYN [Suspect]
     Active Substance: DOFETILIDE
     Indication: ATRIAL FIBRILLATION
     Dosage: 500 MG
  2. TIKOSYN [Suspect]
     Active Substance: DOFETILIDE
     Dosage: 250 MG
  3. TIKOSYN [Suspect]
     Active Substance: DOFETILIDE
     Dosage: 500 UG, UNK
  4. TIKOSYN [Suspect]
     Active Substance: DOFETILIDE
     Dosage: 250 UG, 2X/DAY
     Route: 048

REACTIONS (1)
  - Drug ineffective [Not Recovered/Not Resolved]
